FAERS Safety Report 7210204-0 (Version None)
Quarter: 2011Q1

REPORT INFORMATION
  Report Type: 
  Country: None (occurrence: None)
  Receive Date: 20110105
  Receipt Date: 20101229
  Transmission Date: 20110831
  Serious: Yes (Other)
  Sender: FDA-Public Use
  Company Number: US-JNJFOC-20110100037

PATIENT
  Sex: Male
  Weight: 95.26 kg

DRUGS (4)
  1. LEVAQUIN [Suspect]
     Indication: INFECTION
     Route: 048
  2. UNSPECIFED MEDICATIONS [Concomitant]
     Indication: KNEE ARTHROPLASTY
     Route: 065
  3. PRAVACHOL [Concomitant]
     Indication: ANTIINFLAMMATORY THERAPY
     Route: 048
  4. UNSPECIFED MEDICATIONS [Concomitant]
     Indication: HYPERTENSION
     Route: 065

REACTIONS (2)
  - DEAFNESS [None]
  - PAIN IN EXTREMITY [None]
